FAERS Safety Report 24865520 (Version 2)
Quarter: 2025Q4

REPORT INFORMATION
  Report Type: Spontaneous
  Country: CN (occurrence: CN)
  Receive Date: 20250121
  Receipt Date: 20251121
  Transmission Date: 20260117
  Serious: Yes (Other)
  Sender: ROCHE
  Company Number: CN-CHEPLA-2024014738

PATIENT
  Age: 68 Year
  Sex: Male

DRUGS (4)
  1. BEVACIZUMAB [Suspect]
     Active Substance: BEVACIZUMAB
     Indication: Colon cancer
     Dosage: D1
     Route: 065
  2. CAPECITABINE [Suspect]
     Active Substance: CAPECITABINE
     Indication: Colon cancer
     Route: 048
     Dates: start: 20241021, end: 20241104
  3. OXALIPLATIN [Suspect]
     Active Substance: OXALIPLATIN
     Indication: Colon cancer
     Route: 042
     Dates: start: 20241021, end: 20241021
  4. DEXTROSE [Concomitant]
     Active Substance: DEXTROSE MONOHYDRATE
     Dosage: APPROVAL NO. GYZZ H13022474;  INTRAVENOUS INFUSION
     Route: 042
     Dates: start: 20241021, end: 20241021

REACTIONS (1)
  - Myelosuppression [Recovering/Resolving]

NARRATIVE: CASE EVENT DATE: 20241112
